FAERS Safety Report 13873530 (Version 3)
Quarter: 2017Q3

REPORT INFORMATION
  Report Type: Spontaneous
  Country: US (occurrence: US)
  Receive Date: 20170816
  Receipt Date: 20170921
  Transmission Date: 20171127
  Serious: Yes (Hospitalization, Other)
  Sender: FDA-Public Use
  Company Number: US-009507513-1708USA003520

PATIENT
  Sex: Female

DRUGS (2)
  1. PROAIR HFA [Concomitant]
     Active Substance: ALBUTEROL SULFATE
     Indication: ROUTINE HEALTH MAINTENANCE
     Dosage: UNK
  2. DULERA [Suspect]
     Active Substance: FORMOTEROL FUMARATE DIHYDRATE\MOMETASONE FUROATE
     Indication: ROUTINE HEALTH MAINTENANCE
     Dosage: UNK, AS NEEDED BASIS
     Route: 055
     Dates: start: 2017

REACTIONS (7)
  - Product container issue [Unknown]
  - Product use issue [Unknown]
  - Pneumonia [Unknown]
  - Atrial fibrillation [Unknown]
  - Hip arthroplasty [Unknown]
  - Femur fracture [Recovered/Resolved]
  - Dyspnoea exertional [Unknown]

NARRATIVE: CASE EVENT DATE: 2017
